FAERS Safety Report 14869502 (Version 1)
Quarter: 2018Q2

REPORT INFORMATION
  Report Type: Report from Study
  Country: AR (occurrence: AR)
  Receive Date: 20180509
  Receipt Date: 20180509
  Transmission Date: 20180711
  Serious: Yes (Other)
  Sender: FDA-Public Use
  Company Number: PHHY2018AR077213

PATIENT
  Sex: Female

DRUGS (4)
  1. DIOVAN D [Suspect]
     Active Substance: HYDROCHLOROTHIAZIDE\VALSARTAN
     Indication: ARRHYTHMIA
  2. EXFORGE [Suspect]
     Active Substance: AMLODIPINE BESYLATE\VALSARTAN
     Indication: ARRHYTHMIA
  3. EXFORGE [Suspect]
     Active Substance: AMLODIPINE BESYLATE\VALSARTAN
     Indication: HYPERTENSION
     Dosage: 0.5 DF (AMLODIPINE 5, HYDROCHLOROTHIAZIDE 12.5, VALSARTAN 160, UNITS NOT REPORTED), QD
     Route: 065
  4. DIOVAN D [Suspect]
     Active Substance: HYDROCHLOROTHIAZIDE\VALSARTAN
     Indication: HYPERTENSION
     Dosage: 0.5 DF (160 UNITS NOT REPORTED), QD
     Route: 065

REACTIONS (6)
  - Wrong technique in product usage process [Unknown]
  - Drug prescribing error [Unknown]
  - Memory impairment [Recovering/Resolving]
  - Breast cancer [Recovering/Resolving]
  - Burning sensation [Recovering/Resolving]
  - Distractibility [Recovering/Resolving]

NARRATIVE: CASE EVENT DATE: 2016
